FAERS Safety Report 10059454 (Version 2)
Quarter: 2014Q2

REPORT INFORMATION
  Report Type: Report from Study
  Country: JP (occurrence: JP)
  Receive Date: 20140404
  Receipt Date: 20140430
  Transmission Date: 20141212
  Serious: Yes (Other)
  Sender: FDA-Public Use
  Company Number: JP-SA-2014SA042475

PATIENT
  Age: 84 Year
  Sex: Female

DRUGS (3)
  1. DOCETAXEL [Suspect]
     Indication: ANGIOSARCOMA
     Dosage: SCHEDULED 22 COURSES
     Route: 065
  2. PACLITAXEL [Suspect]
     Indication: ANGIOSARCOMA
     Dosage: 3 COURSE
     Route: 065
  3. PACLITAXEL [Suspect]
     Indication: ANGIOSARCOMA
     Dosage: 1 COURSE
     Route: 065

REACTIONS (2)
  - Porphyria non-acute [Unknown]
  - Off label use [Unknown]
